FAERS Safety Report 10792774 (Version 3)
Quarter: 2015Q1

REPORT INFORMATION
  Report Type: Spontaneous
  Country: US (occurrence: None)
  Receive Date: 20150211
  Receipt Date: 20150312
  Transmission Date: 20150721
  Serious: Yes (Hospitalization, Other)
  Sender: FDA-Public Use
  Company Number: US-TORRENT-00000892

PATIENT
  Age: 48 Year
  Sex: Female

DRUGS (4)
  1. LAMICTAL [Concomitant]
     Active Substance: LAMOTRIGINE
  2. MORPHINE [Concomitant]
     Active Substance: MORPHINE
  3. DULOXETINE HCL DR CAPSULES (DULOXETINER HCL DR CAPSULES) 60 MILLIGRAMS (TPL) [Suspect]
     Active Substance: DULOXETINE HYDROCHLORIDE
     Indication: FIBROMYALGIA
     Dates: start: 20150115, end: 20150201
  4. ABILIFY [Concomitant]
     Active Substance: ARIPIPRAZOLE

REACTIONS (11)
  - Tremor [None]
  - Pain [None]
  - Irritability [None]
  - Migraine [None]
  - Hyperhidrosis [None]
  - Anger [None]
  - Suicidal ideation [None]
  - Condition aggravated [None]
  - Product substitution issue [None]
  - Abnormal behaviour [None]
  - Nausea [None]
